FAERS Safety Report 9863755 (Version 4)
Quarter: 2014Q2

REPORT INFORMATION
  Report Type: Spontaneous
  Country: US (occurrence: US)
  Receive Date: 20140203
  Receipt Date: 20140619
  Transmission Date: 20141212
  Serious: Yes (Other)
  Sender: FDA-Public Use
  Company Number: US-PFIZER INC-2014029659

PATIENT
  Sex: 0

DRUGS (1)
  1. SOLU-MEDROL [Suspect]
     Dosage: 125 MG/2 ML, UNK

REACTIONS (4)
  - Product quality issue [Unknown]
  - Syncope [Unknown]
  - Loss of consciousness [Unknown]
  - Depression [Unknown]
